FAERS Safety Report 9248054 (Version 1)
Quarter: 2013Q1

REPORT INFORMATION
  Report Type: Spontaneous
  Country: US (occurrence: None)
  Receive Date: 20130305
  Receipt Date: 20130305
  Transmission Date: 20140127
  Serious: Yes (Other)
  Sender: FDA-Public Use
  Company Number: 163-21880-12053649

PATIENT
  Age: 68 Year
  Sex: Male
  Weight: 97.52 kg

DRUGS (11)
  1. REVLIMID [Suspect]
     Indication: PLASMA CELL MYELOMA
     Dosage: 21 IN 28 D?
     Route: 048
     Dates: start: 20110203
  2. ZOMETA(ZOLEDRONIC ACID)(UNKNOWN) [Concomitant]
  3. LEXAPRO(ESCITALOPRAM OXALATE)(UNKNOWN) [Concomitant]
  4. CALCIUM(CALCIUM)(UNKNOWN) [Concomitant]
  5. MULTIVITAMINS(MULTIVITAMINS)(UNKNOWN) [Concomitant]
  6. REQUIP(ROPINIROLE HYDROCHLORIDE)(UNKNOWN) [Concomitant]
  7. OMEPRAZOLE(OMEPRAZOLE)(UNKNOWN) [Concomitant]
  8. ASA(ACETYLSALICYLIC ACID)(UNKNOWN) [Concomitant]
  9. JANUMET(JANUMET) (UNKNOWN) [Concomitant]
  10. NORVASC(AMLODIPINE BESILATE)(UNKNOWN) [Concomitant]
  11. PENICILLIN(PENICILLIN NOS)(UNKNOWN) [Concomitant]

REACTIONS (6)
  - Diarrhoea [None]
  - White blood cell count decreased [None]
  - Red blood cell count decreased [None]
  - Paraesthesia [None]
  - Muscle spasms [None]
  - Neuropathy peripheral [None]
